FAERS Safety Report 8912429 (Version 3)
Quarter: 2012Q4

REPORT INFORMATION
  Report Type: 
  Country: JP (occurrence: JP)
  Receive Date: 20121116
  Receipt Date: 20121231
  Transmission Date: 20130627
  Serious: Yes (Hospitalization)
  Sender: FDA-Public Use
  Company Number: JP-009507513-1211JPN005528

PATIENT
  Age: 63 Year
  Sex: Female
  Weight: 40 kg

DRUGS (9)
  1. PEGINTRON [Suspect]
     Indication: CHRONIC HEPATITIS C
     Dosage: 1.5 microgram/kg/week
     Route: 058
     Dates: start: 20120907
  2. REBETOL [Suspect]
     Indication: CHRONIC HEPATITIS C
     Dosage: 600 mg, qd
     Route: 048
     Dates: start: 20120907, end: 20120925
  3. REBETOL [Suspect]
     Dosage: morning and evening, after eating beginning time: morning
     Route: 048
     Dates: start: 20120926, end: 20121115
  4. REBETOL [Suspect]
     Dosage: daily dose unknown, (morning) after eating
     Route: 048
     Dates: start: 20121116
  5. TELAVIC [Suspect]
     Indication: CHRONIC HEPATITIS C
     Dosage: 1500 mg, qd
     Route: 048
     Dates: start: 20120907, end: 20121005
  6. ALLOPURINOL [Suspect]
     Indication: ADVERSE EVENT
     Dosage: 200 mg, qd, Formulation: POR
     Route: 048
     Dates: start: 20120910, end: 20121023
  7. VANARL N [Concomitant]
     Indication: PERIPHERAL VASCULAR DISORDER
     Dosage: 200 mg, qd
     Route: 048
  8. DIOVAN [Concomitant]
     Indication: HYPERTENSION
     Dosage: 80 mg, qd, Formulation: POR
     Route: 048
  9. AMDIPIN [Concomitant]
     Indication: HYPERTENSION
     Dosage: 5 mg, qd, Formulation: POR
     Route: 048

REACTIONS (1)
  - Rash [Not Recovered/Not Resolved]
